FAERS Safety Report 20034749 (Version 2)
Quarter: 2021Q4

REPORT INFORMATION
  Report Type: Spontaneous
  Country: MY (occurrence: MY)
  Receive Date: 20211104
  Receipt Date: 20211117
  Transmission Date: 20220304
  Serious: Yes (Other)
  Sender: FDA-Public Use
  Company Number: MY-TEVA-2021-MY-1972454

PATIENT
  Age: 26 Year
  Sex: Male

DRUGS (3)
  1. PREDNISOLONE [Suspect]
     Active Substance: PREDNISOLONE
     Indication: Still^s disease
     Route: 065
     Dates: start: 201602
  2. METHOTREXATE [Suspect]
     Active Substance: METHOTREXATE
     Indication: Still^s disease
     Route: 065
     Dates: start: 201607
  3. INFLIXIMAB [Suspect]
     Active Substance: INFLIXIMAB
     Indication: Still^s disease
     Route: 065
     Dates: start: 201704

REACTIONS (4)
  - Transaminases increased [Unknown]
  - Rash [Unknown]
  - Osteonecrosis [Unknown]
  - Drug ineffective [Unknown]
